FAERS Safety Report 19982105 (Version 1)
Quarter: 2021Q4

REPORT INFORMATION
  Report Type: Spontaneous
  Country: US (occurrence: US)
  Receive Date: 20211022
  Receipt Date: 20211022
  Transmission Date: 20220303
  Serious: Yes (Other)
  Sender: FDA-Public Use
  Company Number: US-LUPIN PHARMACEUTICALS INC.-2021-20085

PATIENT
  Age: 25 Year
  Sex: Female

DRUGS (13)
  1. TRAMADOL [Suspect]
     Active Substance: TRAMADOL
     Indication: Drug abuse
     Dosage: UNK
     Route: 058
  2. TRAMADOL [Suspect]
     Active Substance: TRAMADOL
     Indication: Back pain
  3. OXYCODONE AND ACETAMINOPHEN [Suspect]
     Active Substance: ACETAMINOPHEN\OXYCODONE HYDROCHLORIDE
     Indication: Drug abuse
     Dosage: ORAL MEDICATIONS RECEIVED AS SC INJECTION
     Route: 058
  4. OXYCODONE AND ACETAMINOPHEN [Suspect]
     Active Substance: ACETAMINOPHEN\OXYCODONE HYDROCHLORIDE
     Indication: Back pain
  5. HYDROCODONE BITARTRATE [Suspect]
     Active Substance: HYDROCODONE BITARTRATE
     Indication: Drug abuse
     Dosage: ORAL MEDICATIONS RECEIVED AS SC INJECTION
     Route: 058
  6. HYDROCODONE BITARTRATE [Suspect]
     Active Substance: HYDROCODONE BITARTRATE
     Indication: Back pain
  7. CLONAZEPAM [Suspect]
     Active Substance: CLONAZEPAM
     Indication: Drug abuse
     Dosage: ORAL MEDICATIONS RECEIVED AS SC INJECTION
     Route: 058
  8. CLONAZEPAM [Suspect]
     Active Substance: CLONAZEPAM
     Indication: Back pain
  9. ACETAMINOPHEN [Suspect]
     Active Substance: ACETAMINOPHEN
     Indication: Drug abuse
     Dosage: ORAL MEDICATIONS RECEIVED AS SC INJECTION
     Route: 058
  10. ACETAMINOPHEN [Suspect]
     Active Substance: ACETAMINOPHEN
     Indication: Back pain
  11. ALPRAZOLAM [Suspect]
     Active Substance: ALPRAZOLAM
     Indication: Drug abuse
     Dosage: ORAL MEDICATIONS RECEIVED AS SC INJECTION
     Route: 058
  12. CYCLOBENZAPRINE HYDROCHLORIDE [Suspect]
     Active Substance: CYCLOBENZAPRINE HYDROCHLORIDE
     Indication: Back pain
     Dosage: ORAL MEDICATIONS RECEIVED AS SC INJECTION
     Route: 058
  13. CYCLOBENZAPRINE HYDROCHLORIDE [Suspect]
     Active Substance: CYCLOBENZAPRINE HYDROCHLORIDE
     Indication: Drug abuse

REACTIONS (2)
  - Panniculitis [Recovered/Resolved]
  - Drug abuse [Unknown]
